FAERS Safety Report 18191990 (Version 2)
Quarter: 2020Q4

REPORT INFORMATION
  Report Type: Spontaneous
  Country: US (occurrence: US)
  Receive Date: 20200825
  Receipt Date: 20201022
  Transmission Date: 20210113
  Serious: Yes (Other)
  Sender: FDA-Public Use
  Company Number: US-SA-2020SA224755

PATIENT

DRUGS (12)
  1. KETOCONAZOLE. [Concomitant]
     Active Substance: KETOCONAZOLE
     Indication: SEBORRHOEIC DERMATITIS
     Dosage: 1
     Route: 030
     Dates: start: 20191010
  2. METHOTREXATE. [Concomitant]
     Active Substance: METHOTREXATE
     Route: 026
  3. DUPIXENT [Suspect]
     Active Substance: DUPILUMAB
     Indication: ECZEMA
     Dosage: 300 MG
     Route: 030
     Dates: start: 20191206
  4. DUPIXENT [Suspect]
     Active Substance: DUPILUMAB
     Dosage: 300 MG
     Route: 058
     Dates: start: 20200117
  5. KETOCONAZOLE. [Concomitant]
     Active Substance: KETOCONAZOLE
     Dosage: 2 %
     Route: 061
     Dates: start: 20200702
  6. MINOCYCLINE [Concomitant]
     Active Substance: MINOCYCLINE HYDROCHLORIDE
     Indication: ROSACEA
     Dosage: 100 MG, QD
     Route: 048
     Dates: start: 20200103
  7. FLUOROURACIL. [Concomitant]
     Active Substance: FLUOROURACIL
     Route: 026
  8. CLOBETASOL [Concomitant]
     Active Substance: CLOBETASOL
     Indication: ECZEMA
     Dosage: 0.05 %, QD
     Route: 061
     Dates: start: 201809
  9. METRONIDAZOLE. [Concomitant]
     Active Substance: METRONIDAZOLE
     Indication: ROSACEA
     Dosage: 0.75 %
     Route: 061
     Dates: start: 20180904
  10. DUPIXENT [Suspect]
     Active Substance: DUPILUMAB
     Indication: DERMATITIS ATOPIC
     Dosage: 600 ML
     Route: 030
     Dates: start: 20191122, end: 20191122
  11. HYDROQUINONE. [Concomitant]
     Active Substance: HYDROQUINONE
     Indication: PIGMENTATION DISORDER
     Dosage: 4 %
     Route: 061
     Dates: start: 20200925
  12. BRYHALI [Concomitant]
     Active Substance: HALOBETASOL PROPIONATE
     Indication: ECZEMA
     Dosage: 0.01 %, QD
     Route: 061
     Dates: start: 20200117

REACTIONS (24)
  - Alopecia [Unknown]
  - Seborrhoeic keratosis [Unknown]
  - Haemangioma of skin [Unknown]
  - Pruritus [Unknown]
  - Sleep disorder [Unknown]
  - Skin burning sensation [Unknown]
  - Cardiac valve disease [Unknown]
  - Pigmentation disorder [Unknown]
  - Blood cholesterol increased [Unknown]
  - Myalgia [Unknown]
  - Oral herpes [Unknown]
  - Rash erythematous [Unknown]
  - Asthenia [Unknown]
  - Incorrect route of product administration [Unknown]
  - Hyperhidrosis [Unknown]
  - Conjunctivitis [Unknown]
  - Injection site pain [Unknown]
  - Dermatitis atopic [Unknown]
  - Chalazion [Unknown]
  - Weight abnormal [Unknown]
  - Pain [Unknown]
  - Conjunctival haemorrhage [Unknown]
  - Gallbladder disorder [Unknown]
  - Arthralgia [Unknown]

NARRATIVE: CASE EVENT DATE: 20191122
